FAERS Safety Report 6144067-1 (Version None)
Quarter: 2009Q2

REPORT INFORMATION
  Report Type: 
  Country: None (occurrence: None)
  Receive Date: 20090401
  Receipt Date: 20090325
  Transmission Date: 20091009
  Serious: Yes (Life-Threatening, Hospitalization)
  Sender: FDA-Public Use
  Company Number: TCI2009A00686

PATIENT
  Age: 92 Year
  Sex: Male

DRUGS (4)
  1. ACTOS [Suspect]
     Indication: TYPE 2 DIABETES MELLITUS
     Dosage: 15 (15 MG, 1 IN 1 D) PER ORAL
     Route: 048
     Dates: start: 20081220, end: 20090126
  2. NIZATIDINE [Concomitant]
  3. AMARYL [Concomitant]
  4. METHYCOBAL (MECOBALAMIN) [Concomitant]

REACTIONS (6)
  - BUNDLE BRANCH BLOCK [None]
  - BUNDLE BRANCH BLOCK RIGHT [None]
  - ELECTROCARDIOGRAM T WAVE AMPLITUDE DECREASED [None]
  - GENERALISED OEDEMA [None]
  - HYPOXIA [None]
  - PLEURAL EFFUSION [None]
